FAERS Safety Report 8031048-6 (Version None)
Quarter: 2012Q1

REPORT INFORMATION
  Report Type: 
  Country: None (occurrence: None)
  Receive Date: 20120109
  Receipt Date: 20120106
  Transmission Date: 20120608
  Serious: No
  Sender: FDA-Public Use
  Company Number: US-PFIZER INC-2011274905

PATIENT
  Sex: Female
  Weight: 58.957 kg

DRUGS (3)
  1. CHANTIX [Suspect]
     Indication: SMOKING CESSATION THERAPY
     Dosage: 1 MG, 2X/DAY
     Route: 048
     Dates: start: 20111020
  2. PREMARIN [Concomitant]
     Indication: HOT FLUSH
     Dosage: UNK
  3. LISINOPRIL [Concomitant]
     Indication: HYPERTENSION
     Dosage: UNK

REACTIONS (4)
  - MIGRAINE [None]
  - NAUSEA [None]
  - VOMITING [None]
  - DRUG ADMINISTRATION ERROR [None]
